FAERS Safety Report 17136345 (Version 1)
Quarter: 2019Q4

REPORT INFORMATION
  Report Type: Report from Study
  Country: FR (occurrence: FR)
  Receive Date: 20191210
  Receipt Date: 20191210
  Transmission Date: 20200122
  Serious: Yes (Hospitalization)
  Sender: FDA-Public Use
  Company Number: NVSC2019FR063902

PATIENT
  Age: 69 Year
  Sex: Female
  Weight: 83 kg

DRUGS (3)
  1. MYFORTIC [Suspect]
     Active Substance: MYCOPHENOLATE SODIUM
     Indication: PROPHYLAXIS AGAINST TRANSPLANT REJECTION
     Dosage: 720 MG
     Route: 065
     Dates: start: 20181121, end: 20191011
  2. ADOPORT [Suspect]
     Active Substance: TACROLIMUS
     Indication: RENAL TRANSPLANT
     Dosage: 4 MG
     Route: 065
     Dates: start: 20181122
  3. SOLUPRED [PREDNISOLONE METASULFOBENZOATE SODIUM] [Suspect]
     Active Substance: PREDNISOLONE SODIUM METAZOATE
     Indication: PROPHYLAXIS AGAINST TRANSPLANT REJECTION
     Dosage: 5 MG,EVERY OTHERDAY
     Route: 065
     Dates: start: 20190222, end: 20191011

REACTIONS (3)
  - Skin lesion [Recovered/Resolved with Sequelae]
  - Herpes zoster [Recovered/Resolved with Sequelae]
  - Facial paralysis [Recovered/Resolved with Sequelae]

NARRATIVE: CASE EVENT DATE: 20191008
